FAERS Safety Report 9856949 (Version 2)
Quarter: 2014Q1

REPORT INFORMATION
  Report Type: Report from Study
  Country: IN (occurrence: IN)
  Receive Date: 20140130
  Receipt Date: 20140130
  Transmission Date: 20141002
  Serious: Yes (Hospitalization)
  Sender: FDA-Public Use
  Company Number: PHHO2014IN000761

PATIENT
  Sex: 0

DRUGS (9)
  1. MYFORTIC [Suspect]
     Indication: RENAL TRANSPLANT
     Dosage: 720 MG, BD
     Route: 048
     Dates: start: 20120120
  2. TAKFA [Concomitant]
     Indication: RENAL TRANSPLANT
     Dosage: 2 MG, OD
     Route: 048
     Dates: start: 20130225
  3. WYSOLONE [Concomitant]
     Indication: RENAL TRANSPLANT
     Dosage: 10 MG, OD
     Route: 048
     Dates: start: 20120120
  4. ELTROXIN [Concomitant]
     Indication: THYROID HORMONE REPLACEMENT THERAPY
     Dosage: 25 MG, QD
     Route: 048
     Dates: start: 20130301
  5. PAN D [Concomitant]
     Indication: ANTACID THERAPY
     Dosage: BD
     Route: 048
     Dates: start: 20131026
  6. ARKAMIN [Concomitant]
     Indication: HYPERTENSION
     Dosage: 0.2 MG, ^TDS^
     Route: 048
     Dates: start: 20120120
  7. MINIPRESS XL [Concomitant]
     Indication: HYPERTENSION
     Dosage: 5 MG, QD
     Route: 048
     Dates: start: 20131026
  8. NORFLOX [Concomitant]
     Indication: INFECTION
     Dosage: 400 MG, BID
     Route: 048
     Dates: start: 20131026
  9. SARTEL [Concomitant]
     Indication: HYPERTENSION
     Dosage: 40 MG, BID
     Route: 048
     Dates: start: 20131026

REACTIONS (1)
  - Lower respiratory tract infection [Not Recovered/Not Resolved]
